FAERS Safety Report 14477114 (Version 1)
Quarter: 2018Q1

REPORT INFORMATION
  Report Type: Report from Study
  Country: US (occurrence: US)
  Receive Date: 20180201
  Receipt Date: 20180201
  Transmission Date: 20180509
  Serious: No
  Sender: FDA-Public Use
  Company Number: US-EXELIXIS-CABO-17009995

PATIENT
  Sex: Female

DRUGS (17)
  1. CARISOPRODOL. [Concomitant]
     Active Substance: CARISOPRODOL
  2. BUPIVACAINE. [Concomitant]
     Active Substance: BUPIVACAINE
  3. VITAMIN D [Concomitant]
     Active Substance: CHOLECALCIFEROL
  4. OPIUM TINCTURE [Concomitant]
     Active Substance: MORPHINE
  5. KETAMINE [Concomitant]
     Active Substance: KETAMINE
  6. RITALIN [Concomitant]
     Active Substance: METHYLPHENIDATE HYDROCHLORIDE
  7. GABAPENTIN. [Concomitant]
     Active Substance: GABAPENTIN
  8. ONDANSETRON [Concomitant]
     Active Substance: ONDANSETRON
  9. MULTIVITAMINS [Concomitant]
     Active Substance: VITAMINS
  10. BUPROPION. [Concomitant]
     Active Substance: BUPROPION
  11. LEVOTHYROXINE. [Concomitant]
     Active Substance: LEVOTHYROXINE
  12. MORPHINE [Concomitant]
     Active Substance: MORPHINE
  13. VITAMIN B1 [Concomitant]
     Active Substance: THIAMINE HYDROCHLORIDE
  14. COMETRIQ [Suspect]
     Active Substance: CABOZANTINIB S-MALATE
     Indication: THYROID CANCER
     Dosage: 100 MG, QD
     Route: 048
     Dates: start: 20130207, end: 20130330
  15. COMETRIQ [Suspect]
     Active Substance: CABOZANTINIB S-MALATE
     Dosage: 60 MG, QD
     Route: 048
  16. ZOLPIDEM [Concomitant]
     Active Substance: ZOLPIDEM\ZOLPIDEM TARTRATE
  17. LOMOTIL [Concomitant]
     Active Substance: ATROPINE SULFATE\DIPHENOXYLATE HYDROCHLORIDE

REACTIONS (1)
  - Lung disorder [Unknown]
